FAERS Safety Report 7111689-0 (Version None)
Quarter: 2010Q4

REPORT INFORMATION
  Report Type: 
  Country: None (occurrence: None)
  Receive Date: 20101118
  Receipt Date: 20101110
  Transmission Date: 20110411
  Serious: Yes (Other)
  Sender: FDA-Public Use
  Company Number: US-PFIZER INC-2010139134

PATIENT
  Sex: Female
  Weight: 91 kg

DRUGS (15)
  1. CHANTIX [Suspect]
     Indication: SMOKING CESSATION THERAPY
     Dosage: 0.5 MG, 1X/DAY
     Route: 048
     Dates: start: 20101028
  2. CHANTIX [Suspect]
     Dosage: 1 MG, 2X/DAY
     Route: 048
     Dates: start: 20101029
  3. CHANTIX [Suspect]
     Dosage: 1 MG, 1X/DAY
     Dates: start: 20101109
  4. TRANXENE [Concomitant]
     Dosage: UNK
  5. PRILOSEC [Concomitant]
     Dosage: UNK
  6. MORPHINE [Concomitant]
     Dosage: UNK
  7. PERCOCET [Concomitant]
     Dosage: UNK
  8. REGLAN [Concomitant]
     Dosage: UNK
  9. ZANAFLEX [Concomitant]
     Dosage: UNK
  10. TRAZODONE [Concomitant]
     Dosage: UNK
  11. DOXEPIN [Concomitant]
     Dosage: UNK
  12. LIPITOR [Concomitant]
     Dosage: UNK
  13. TOPAMAX [Concomitant]
     Dosage: UNK
  14. FLEXERIL [Concomitant]
     Dosage: UNK
  15. PREMPRO [Concomitant]
     Dosage: UNK

REACTIONS (1)
  - OROPHARYNGEAL BLISTERING [None]
